FAERS Safety Report 18439434 (Version 3)
Quarter: 2021Q1

REPORT INFORMATION
  Report Type: Report from Study
  Country: None (occurrence: US)
  Receive Date: 20201028
  Receipt Date: 20210330
  Transmission Date: 20210419
  Serious: Yes (Other)
  Sender: FDA-Public Use
  Company Number: US-ABBVIE-20K-163-3623692-00

PATIENT
  Sex: Female
  Weight: 102.15 kg

DRUGS (1)
  1. HUMIRA [Suspect]
     Active Substance: ADALIMUMAB
     Indication: ANKYLOSING SPONDYLITIS
     Route: 058

REACTIONS (5)
  - Intervertebral disc degeneration [Unknown]
  - Intervertebral disc protrusion [Not Recovered/Not Resolved]
  - Medical device removal [Unknown]
  - Stenosis [Not Recovered/Not Resolved]
  - Osteoarthritis [Unknown]
